FAERS Safety Report 16987457 (Version 2)
Quarter: 2019Q4

REPORT INFORMATION
  Report Type: Spontaneous
  Country: US (occurrence: US)
  Receive Date: 20191102
  Receipt Date: 20191104
  Transmission Date: 20200122
  Serious: Yes (Hospitalization, Other)
  Sender: FDA-Public Use
  Company Number: US-SHIRE-US201936316

PATIENT
  Age: 59 Year
  Sex: Male

DRUGS (1)
  1. GATTEX [Suspect]
     Active Substance: TEDUGLUTIDE\WATER
     Indication: CROHN^S DISEASE
     Dosage: 2.94 MILLIGRAM, 1X/DAY:QD
     Route: 058
     Dates: start: 201702

REACTIONS (2)
  - Staphylococcal infection [Unknown]
  - Renal failure [Unknown]

NARRATIVE: CASE EVENT DATE: 201910
